FAERS Safety Report 6919044-0 (Version None)
Quarter: 2010Q3

REPORT INFORMATION
  Report Type: 
  Country: None (occurrence: None)
  Receive Date: 20100811
  Receipt Date: 20100713
  Transmission Date: 20110219
  Serious: Yes (Hospitalization)
  Sender: FDA-Public Use
  Company Number: PHHY2010DE50583

PATIENT
  Sex: Female
  Weight: 50 kg

DRUGS (4)
  1. STALEVO 100 [Suspect]
     Indication: PARKINSON'S DISEASE
     Dosage: UNK
     Route: 048
     Dates: start: 20000501
  2. STALEVO 100 [Suspect]
     Dosage: 1 DF, QID
     Route: 048
     Dates: start: 20100501
  3. REQUIP [Concomitant]
  4. SEROQUEL [Concomitant]

REACTIONS (4)
  - ANAEMIA [None]
  - COLECTOMY [None]
  - ILEUS [None]
  - LEUKOPENIA [None]
